FAERS Safety Report 8152099-7 (Version None)
Quarter: 2012Q1

REPORT INFORMATION
  Report Type: 
  Country: None (occurrence: None)
  Receive Date: 20120221
  Receipt Date: 20120215
  Transmission Date: 20120608
  Serious: Yes (Other)
  Sender: FDA-Public Use
  Company Number: US-PFIZER INC-2012041396

PATIENT
  Sex: Female
  Weight: 113.4 kg

DRUGS (12)
  1. LIPITOR [Suspect]
     Indication: BLOOD CHOLESTEROL INCREASED
     Dosage: 20 MG, 1X/DAY
     Route: 048
  2. LIPITOR [Suspect]
     Dosage: UNK
     Route: 048
  3. AMLODIPINE/VALSARTAN [Concomitant]
     Dosage: UNK, 1X/DAY
  4. EFFEXOR [Suspect]
     Indication: ANTIDEPRESSANT THERAPY
     Dosage: 150 MG, 1X/DAY
     Route: 048
  5. ACETYLSALICYLIC ACID [Concomitant]
     Dosage: UNK, 1X/DAY
  6. SPIRIVA [Concomitant]
     Dosage: UNK
  7. NEXIUM [Concomitant]
     Dosage: UNK
  8. AMITRIPTYLINE [Concomitant]
     Dosage: 100MG, UNK
  9. LYRICA [Suspect]
     Dosage: UNK
     Route: 048
  10. EFFEXOR [Suspect]
     Dosage: UNK
     Route: 048
  11. LYRICA [Suspect]
     Indication: FIBROMYALGIA
     Dosage: 150 MG, 3X/DAY
     Route: 048
  12. BYSTOLIC [Concomitant]
     Dosage: UNK

REACTIONS (4)
  - FALL [None]
  - BLOOD CHOLESTEROL INCREASED [None]
  - ANKLE FRACTURE [None]
  - HYPOAESTHESIA [None]
